FAERS Safety Report 5100970-2 (Version None)
Quarter: 2006Q3

REPORT INFORMATION
  Report Type: 
  Country: None (occurrence: None)
  Receive Date: 20060911
  Receipt Date: 20060904
  Transmission Date: 20061208
  Serious: Yes (Hospitalization)
  Sender: FDA-Public Use
  Company Number: IT-BAYER-200613854GDS

PATIENT
  Age: 56 Year
  Sex: Male

DRUGS (1)
  1. OCTEGRA [Suspect]
     Indication: TONSILLITIS
     Route: 048
     Dates: start: 20060815, end: 20060820

REACTIONS (4)
  - ASTHENIA [None]
  - HYPOTONIA [None]
  - MUSCULAR WEAKNESS [None]
  - MYALGIA [None]
